FAERS Safety Report 18339191 (Version 1)
Quarter: 2020Q4

REPORT INFORMATION
  Report Type: Spontaneous
  Country: IE (occurrence: IE)
  Receive Date: 20201002
  Receipt Date: 20201002
  Transmission Date: 20210113
  Serious: Yes (Other)
  Sender: FDA-Public Use
  Company Number: IE-DSJP-DSE-2020-128473

PATIENT
  Sex: Male

DRUGS (1)
  1. LIXIANA [Suspect]
     Active Substance: EDOXABAN TOSYLATE
     Indication: PRODUCT USED FOR UNKNOWN INDICATION
     Dosage: UNK
     Dates: start: 2020

REACTIONS (5)
  - Contusion [Unknown]
  - Gingival blister [Unknown]
  - Dizziness [Unknown]
  - Rash macular [Unknown]
  - Head discomfort [Unknown]

NARRATIVE: CASE EVENT DATE: 2020
